FAERS Safety Report 13138094 (Version 1)
Quarter: 2017Q1

REPORT INFORMATION
  Report Type: Spontaneous
  Country: US (occurrence: US)
  Receive Date: 20170123
  Receipt Date: 20170123
  Transmission Date: 20170428
  Serious: No
  Sender: FDA-Public Use
  Company Number: US-UNITED THERAPEUTICS-UNT-2016-007713

PATIENT
  Age: 32 Year
  Sex: Female
  Weight: 62.13 kg

DRUGS (5)
  1. LETAIRIS [Concomitant]
     Active Substance: AMBRISENTAN
     Indication: PRODUCT USED FOR UNKNOWN INDICATION
  2. ADEMPAS [Concomitant]
     Active Substance: RIOCIGUAT
     Indication: PRODUCT USED FOR UNKNOWN INDICATION
  3. REMODULIN [Suspect]
     Active Substance: TREPROSTINIL
     Indication: PULMONARY HYPERTENSION
     Dosage: 0.068 ?G/KG, CONTINUING
     Route: 041
     Dates: start: 20101210
  4. ADCIRCA [Concomitant]
     Active Substance: TADALAFIL
     Indication: PRODUCT USED FOR UNKNOWN INDICATION
  5. REMODULIN [Suspect]
     Active Substance: TREPROSTINIL
     Dosage: UNK
     Route: 041

REACTIONS (12)
  - Contusion [Unknown]
  - Periorbital oedema [Unknown]
  - Palpitations [Unknown]
  - Cough [Unknown]
  - Chest pain [Unknown]
  - Dyspnoea exertional [Unknown]
  - Dizziness [Unknown]
  - Fatigue [Unknown]
  - Gingival bleeding [Unknown]
  - Chest discomfort [Unknown]
  - Pulmonary pain [Unknown]
  - Urinary tract infection [Unknown]

NARRATIVE: CASE EVENT DATE: 201605
